FAERS Safety Report 6573807-2 (Version None)
Quarter: 2010Q1

REPORT INFORMATION
  Report Type: 
  Country: None (occurrence: None)
  Receive Date: 20100208
  Receipt Date: 20100128
  Transmission Date: 20100710
  Serious: Yes (Hospitalization)
  Sender: FDA-Public Use
  Company Number: CG-MERCK-1001USA03825

PATIENT
  Age: 27 Year
  Sex: Male
  Weight: 66 kg

DRUGS (1)
  1. STROMECTOL [Suspect]
     Route: 048
     Dates: start: 20091203, end: 20091203

REACTIONS (8)
  - ARTHRALGIA [None]
  - ASTHENIA [None]
  - COMA [None]
  - CONJUNCTIVAL HAEMORRHAGE [None]
  - HEADACHE [None]
  - MALARIA [None]
  - PRURITUS [None]
  - PYREXIA [None]
